APPROVED DRUG PRODUCT: PREGABALIN
Active Ingredient: PREGABALIN
Strength: 225MG
Dosage Form/Route: CAPSULE;ORAL
Application: A091224 | Product #005
Applicant: TEVA PHARMACEUTICALS USA
Approved: Jul 19, 2019 | RLD: No | RS: No | Type: DISCN